FAERS Safety Report 8501153 (Version 2)
Quarter: 2013Q2

REPORT INFORMATION
  Report Type: Spontaneous
  Country: US (occurrence: None)
  Receive Date: 20120327
  Receipt Date: 20120709
  Transmission Date: 20140414
  Serious: Yes (Life-Threatening, Hospitalization)
  Sender: FDA-Public Use
  Company Number: PHHY2011US26667

PATIENT
  Age: 50 Year
  Sex: Female
  Weight: 103 kg

DRUGS (1)
  1. GLEEVEC (IMATINIB) UNKNOWN [Suspect]
     Indication: SOFT TISSUE NEOPLASM
     Dosage: 400 MG, DAILY, ORAL
     Route: 048
     Dates: start: 20110228

REACTIONS (13)
  - HYPERSENSITIVITY [None]
  - RASH GENERALISED [None]
  - NASOPHARYNGITIS [None]
  - ALOPECIA [None]
  - RASH ERYTHEMATOUS [None]
  - PRURITUS [None]
  - BLISTER [None]
  - Intestinal obstruction [None]
  - Vomiting [None]
  - Abdominal pain upper [None]
  - Gastrointestinal necrosis [None]
  - Gangrene [None]
  - Abdominal distension [None]
